FAERS Safety Report 9441842 (Version 1)
Quarter: 2013Q3

REPORT INFORMATION
  Report Type: Spontaneous
  Country: US (occurrence: US)
  Receive Date: 20130806
  Receipt Date: 20130806
  Transmission Date: 20140515
  Serious: No
  Sender: FDA-Public Use
  Company Number: US-009507513-1307USA016903

PATIENT
  Age: 70 Year
  Sex: Male

DRUGS (2)
  1. NASONEX [Suspect]
     Indication: HYPERSENSITIVITY
     Dosage: TWO SPRAYS EACH NOSTRIL TWICE A DAY
     Route: 045
     Dates: start: 2003
  2. NEXIUM [Concomitant]

REACTIONS (2)
  - Throat irritation [Recovered/Resolved]
  - Product quality issue [Unknown]
